FAERS Safety Report 14953031 (Version 2)
Quarter: 2018Q4

REPORT INFORMATION
  Report Type: Report from Study
  Country: None (occurrence: DE)
  Receive Date: 20180530
  Receipt Date: 20181105
  Transmission Date: 20190204
  Serious: Yes (Life-Threatening, Hospitalization, Other)
  Sender: FDA-Public Use
  Company Number: DE-KADMON PHARMACEUTICALS, LLC-KAD-201803-01255

PATIENT
  Age: 38 Year
  Sex: Female
  Weight: 65 kg

DRUGS (36)
  1. OMEPRAZOL [Concomitant]
     Active Substance: OMEPRAZOLE
     Dates: start: 20130503
  2. METAMIZOL [Concomitant]
     Active Substance: METAMIZOLE SODIUM
     Dosage: 500 MG
     Dates: start: 20130627
  3. L THYROXIN BETA [Concomitant]
     Dosage: 12.5 MCG
     Dates: start: 20131203
  4. AZITHROMYCIN ANHYDROUS. [Concomitant]
     Active Substance: AZITHROMYCIN ANHYDROUS
     Dosage: 1000 MG DAILY; LATER ONE PER ONE DAY
     Dates: start: 20141030, end: 20141104
  5. FUCICORT [Concomitant]
     Active Substance: BETAMETHASONE VALERATE\FUSIDIC ACID
     Dosage: 15 GM
     Dates: start: 20130715
  6. MIRTAZAPIN [Concomitant]
     Active Substance: MIRTAZAPINE
     Dosage: 15 MG
     Dates: start: 20130402
  7. CEFUROXIM [Concomitant]
     Active Substance: CEFUROXIME
     Dosage: 500 MG
     Dates: start: 20130603, end: 20130609
  8. BUDESONIDE EASYHALER [Concomitant]
     Active Substance: BUDESONIDE
     Dates: start: 20140331
  9. PEGINTERFERON ALFA-2A. [Suspect]
     Active Substance: PEGINTERFERON ALFA-2A
     Indication: HEPATITIS C
     Dosage: 180 MCG
     Route: 058
     Dates: start: 20130415, end: 20131110
  10. LOPERAMID [Concomitant]
     Active Substance: LOPERAMIDE
     Dates: start: 20130603, end: 20130603
  11. BETAGALEN [Concomitant]
     Dates: start: 20130426
  12. IBUPROFEN. [Concomitant]
     Active Substance: IBUPROFEN
     Dosage: 600 MG
  13. RISPERIDON [Concomitant]
     Active Substance: RISPERIDONE
     Dates: start: 20140401, end: 20140408
  14. VITAMIN D3 [Concomitant]
     Active Substance: CHOLECALCIFEROL
     Route: 048
     Dates: start: 20130320, end: 20130415
  15. TETRACAINE HYDROCHLORIDE. [Concomitant]
     Active Substance: TETRACAINE HYDROCHLORIDE
     Dates: start: 20130627
  16. L THYROXIN BETA [Concomitant]
     Dosage: 25 MCG
     Dates: start: 20131202
  17. AZITHROMYCIN ANHYDROUS. [Concomitant]
     Active Substance: AZITHROMYCIN ANHYDROUS
     Dosage: 500 MG
     Dates: start: 20140408, end: 20140410
  18. LOTRIDERM [Concomitant]
     Active Substance: BETAMETHASONE DIPROPIONATE\CLOTRIMAZOLE
     Dates: start: 20130610
  19. AZITHROMYCIN ANHYDROUS. [Concomitant]
     Active Substance: AZITHROMYCIN ANHYDROUS
     Dosage: 500 MG
     Dates: start: 20130627, end: 20130629
  20. AMPICILLIN AND SULBACTAM [Concomitant]
     Active Substance: AMPICILLIN SODIUM\SULBACTAM SODIUM
     Dates: start: 20140324, end: 20140328
  21. NEO-ANGIN [Concomitant]
     Dates: start: 20131118
  22. BEPANTHEN [Concomitant]
  23. PEGINTERFERON ALFA-2A. [Suspect]
     Active Substance: PEGINTERFERON ALFA-2A
     Dosage: 135 MCG
     Route: 058
     Dates: start: 20131111, end: 20131117
  24. PEGINTERFERON ALFA-2A. [Suspect]
     Active Substance: PEGINTERFERON ALFA-2A
     Dosage: 135 MCG
     Dates: start: 20131118, end: 20140317
  25. L THYROXIN BETA [Concomitant]
     Dosage: 50 MCG
     Dates: start: 20130722, end: 20131202
  26. AZITHROMYCIN ANHYDROUS. [Concomitant]
     Active Substance: AZITHROMYCIN ANHYDROUS
     Dosage: 500 MG
     Dates: start: 20130527, end: 20130529
  27. AMPHO MORONAL [Concomitant]
     Active Substance: AMPHOTERICIN B
     Dates: start: 20130610
  28. DEXAMYTREX [Concomitant]
     Active Substance: DEXAMETHASONE SODIUM PHOSPHATE\GENTAMICIN SULFATE
     Dates: start: 20130712
  29. RIBAVIRIN. [Suspect]
     Active Substance: RIBAVIRIN
     Indication: HEPATITIS C
     Dosage: 600 MG
     Route: 048
     Dates: start: 20130321, end: 20140317
  30. L THYROXIN BETA [Concomitant]
     Dosage: 25 MCG
     Dates: start: 20130617
  31. L THYROXIN BETA [Concomitant]
     Dates: start: 20130627
  32. AZITHROMYCIN ANHYDROUS. [Concomitant]
     Active Substance: AZITHROMYCIN ANHYDROUS
     Dosage: 500 MG
     Dates: start: 20130503, end: 20130505
  33. UNACID (SULTAMICILLIN TOSILATE) [Concomitant]
     Active Substance: SULTAMICILLIN TOSYLATE
     Dosage: 2 DOSAGE FORMS
     Dates: start: 20140324, end: 20140328
  34. AZITHROMYCIN ANHYDROUS. [Concomitant]
     Active Substance: AZITHROMYCIN ANHYDROUS
     Dosage: 500 MG
     Dates: start: 20130712, end: 20130714
  35. VIVINOX [Concomitant]
     Dates: start: 20130909
  36. AMPHO MORONAL [Concomitant]
     Active Substance: AMPHOTERICIN B
     Dosage: 10 MG
     Dates: start: 20131230

REACTIONS (17)
  - Bradycardia [Not Recovered/Not Resolved]
  - Hypersensitivity [Unknown]
  - Circulatory collapse [Unknown]
  - Drug dependence [Not Recovered/Not Resolved]
  - Bulimia nervosa [Recovered/Resolved]
  - Weight decreased [Not Recovered/Not Resolved]
  - Muscle spasms [Unknown]
  - Hypotension [Unknown]
  - Wound infection [Recovered/Resolved]
  - Bulimia nervosa [Not Recovered/Not Resolved]
  - Oropharyngeal pain [Recovered/Resolved]
  - Abdominal discomfort [Recovered/Resolved]
  - Dyspepsia [Recovered/Resolved]
  - Alanine aminotransferase increased [Not Recovered/Not Resolved]
  - Nausea [Unknown]
  - Syncope [Unknown]
  - Alcohol abuse [Recovered/Resolved]

NARRATIVE: CASE EVENT DATE: 20130415
